FAERS Safety Report 22026505 (Version 1)
Quarter: 2023Q1

REPORT INFORMATION
  Report Type: Spontaneous
  Country: US (occurrence: None)
  Receive Date: 20230223
  Receipt Date: 20230223
  Transmission Date: 20230418
  Serious: No
  Sender: FDA-Public Use
  Company Number: US-ROCHE-3173107

PATIENT
  Age: 64 Year
  Sex: Male
  Weight: 111.23 kg

DRUGS (14)
  1. XOLAIR [Suspect]
     Active Substance: OMALIZUMAB
     Indication: Asthma
     Dosage: (2) 150 MG/1 ML PREFILLED SYRINGES
     Route: 058
     Dates: start: 202202
  2. XOLAIR [Suspect]
     Active Substance: OMALIZUMAB
  3. XOLAIR [Suspect]
     Active Substance: OMALIZUMAB
  4. XOLAIR [Suspect]
     Active Substance: OMALIZUMAB
     Route: 058
     Dates: start: 20220324
  5. XOLAIR [Suspect]
     Active Substance: OMALIZUMAB
  6. XOLAIR [Suspect]
     Active Substance: OMALIZUMAB
  7. ALBUTEROL SULFATE [Concomitant]
     Active Substance: ALBUTEROL SULFATE
     Dosage: ONE TO TWO PUFFS EVERY 4 HOURS AS NEEDED FOR WHEEZING
     Route: 055
  8. ASPIRIN [Concomitant]
     Active Substance: ASPIRIN
     Route: 048
  9. AZELASTINE [Concomitant]
     Active Substance: AZELASTINE
     Route: 045
  10. CIALIS [Concomitant]
     Active Substance: TADALAFIL
     Route: 048
  11. CABERGOLINE [Concomitant]
     Active Substance: CABERGOLINE
     Dosage: TWO 0.5 MG TABLETS PER DOSE
     Route: 048
  12. CETIRIZINE [Concomitant]
     Active Substance: CETIRIZINE HYDROCHLORIDE
     Route: 048
  13. CHOLECALCIFEROL [Concomitant]
     Active Substance: CHOLECALCIFEROL
     Indication: Vitamin D deficiency
     Route: 048
  14. VITAMIN B COMPLEX [Concomitant]
     Active Substance: CYANOCOBALAMIN\DEXPANTHENOL\NIACINAMIDE\PYRIDOXINE HYDROCHLORIDE\RIBOFLAVIN 5^-PHOSPHATE SODIUM\THIA
     Route: 048

REACTIONS (5)
  - Incorrect dose administered [Unknown]
  - Accidental exposure to product [Unknown]
  - Syringe issue [Unknown]
  - Syringe issue [Unknown]
  - No adverse event [Unknown]

NARRATIVE: CASE EVENT DATE: 20220831
